FAERS Safety Report 24438384 (Version 1)
Quarter: 2024Q4

REPORT INFORMATION
  Report Type: Spontaneous
  Country: US (occurrence: US)
  Receive Date: 20241015
  Receipt Date: 20241015
  Transmission Date: 20250115
  Serious: Yes (Hospitalization, Other)
  Sender: OTSUKA
  Company Number: US-OTSUKA-2024_027774

PATIENT
  Sex: Female
  Weight: 104.33 kg

DRUGS (1)
  1. NUEDEXTA [Suspect]
     Active Substance: DEXTROMETHORPHAN HYDROBROMIDE\QUINIDINE SULFATE
     Indication: Affect lability
     Dosage: (20-10MG), BID (EVERY 12 HOURS)
     Route: 065
     Dates: start: 2015

REACTIONS (2)
  - Nephrolithiasis [Unknown]
  - Suicidal ideation [Unknown]
